FAERS Safety Report 26134553 (Version 1)
Quarter: 2025Q4

REPORT INFORMATION
  Report Type: Spontaneous
  Country: US (occurrence: US)
  Receive Date: 20251209
  Receipt Date: 20251209
  Transmission Date: 20260118
  Serious: No
  Sender: FOUNDATION CONSUMER HEALTHCARE, LLC
  Company Number: US-FOUNDATIONCONSUMERHC-2025-US-050539

PATIENT
  Age: 35 Year
  Sex: Female

DRUGS (2)
  1. PLAN B ONE-STEP [Suspect]
     Active Substance: LEVONORGESTREL
     Indication: Post coital contraception
     Dosage: UNK, ORAL
     Route: 048
     Dates: start: 202506, end: 202506
  2. ENILLORING (ETHINYL ESTRADIOL, ETONOGESTREL) [Concomitant]
     Dosage: ONE RING CONTINUOUSLY FOR THREE WEEKS, FOLLOWED BY ONE WEEK RING-FREE
     Route: 067
     Dates: start: 2024

REACTIONS (2)
  - Vaginal haemorrhage [Recovered/Resolved]
  - Menstruation irregular [Recovered/Resolved]

NARRATIVE: CASE EVENT DATE: 20250601
